FAERS Safety Report 7590783-4 (Version None)
Quarter: 2011Q3

REPORT INFORMATION
  Report Type: 
  Country: None (occurrence: None)
  Receive Date: 20110705
  Receipt Date: 20110621
  Transmission Date: 20111222
  Serious: Yes (Other)
  Sender: FDA-Public Use
  Company Number: PHHY2011US49274

PATIENT
  Sex: Male
  Weight: 61 kg

DRUGS (14)
  1. FOLIC ACID [Concomitant]
     Dosage: 01 DF, QD
     Route: 048
  2. TYLENOL W/ CODEINE [Concomitant]
     Indication: PAIN
     Dosage: 01 DF, Q4H PRN
  3. FLONASE [Concomitant]
     Indication: ZINC DEFICIENCY
     Dosage: 01 DF, PRN
  4. CLARITIN [Concomitant]
     Indication: SEASONAL ALLERGY
     Dosage: 10 MG/ML, UNK
     Route: 048
     Dates: start: 20050322
  5. EXJADE [Suspect]
     Dosage: 1000 MG, QD
     Route: 048
     Dates: start: 20100608, end: 20110501
  6. ACETAMINOPHEN [Concomitant]
     Dosage: 500 MG, UNK
     Route: 048
     Dates: start: 20070619
  7. BENADRYL [Concomitant]
     Dosage: 25 MG, UNK
     Route: 048
     Dates: start: 20070619
  8. VITAMIN D [Concomitant]
     Indication: VITAMIN D DEFICIENCY
     Dosage: 01 DF, QW4
     Route: 048
  9. DE CHLOR DM [Concomitant]
     Indication: NASAL CONGESTION
     Dosage: 0.5 TSP, Q4- 6H
     Route: 048
     Dates: start: 20070102
  10. MIRALAX [Concomitant]
     Indication: CONSTIPATION
     Dosage: 01 CAPFUL WITH 08 OZ FLUID PRN
  11. ALBUTEROL SULFATE AUTOHALER [Concomitant]
     Indication: WHEEZING
     Dosage: 90 UG (01 TO 02 PUFFS EVERY 4-6 HRS)
     Route: 048
     Dates: start: 20060418
  12. OXYCODONE AND ACETAMINOPHEN [Concomitant]
     Indication: CONSTIPATION
     Dosage: 01 DFEVERY 4-6 HRS PRN, DO NOT TAKE WITH CODEINE
  13. ZINC GLUCONATE [Concomitant]
     Indication: ZINC DEFICIENCY
     Dosage: 01 DF, QD
     Route: 048
  14. TOPAMAX [Concomitant]
     Indication: ZINC DEFICIENCY
     Dosage: 01 DF, QHS

REACTIONS (23)
  - MIGRAINE [None]
  - HEADACHE [None]
  - DYSPNOEA [None]
  - NERVOUS SYSTEM DISORDER [None]
  - NASAL CONGESTION [None]
  - VITAMIN D DEFICIENCY [None]
  - COUGH [None]
  - PAIN [None]
  - BLOOD PRESSURE SYSTOLIC INCREASED [None]
  - FATIGUE [None]
  - JOINT RANGE OF MOTION DECREASED [None]
  - TREMOR [None]
  - GYNAECOMASTIA [None]
  - LYMPHADENOPATHY [None]
  - BLOOD CREATININE INCREASED [None]
  - TONSILLITIS [None]
  - SICKLE CELL ANAEMIA WITH CRISIS [None]
  - CLONUS [None]
  - GAIT DISTURBANCE [None]
  - PYREXIA [None]
  - BLOOD PRESSURE DIASTOLIC DECREASED [None]
  - INFLUENZA LIKE ILLNESS [None]
  - OROPHARYNGEAL PAIN [None]
